FAERS Safety Report 6678591-X (Version None)
Quarter: 2010Q2

REPORT INFORMATION
  Report Type: 
  Country: None (occurrence: None)
  Receive Date: 20100412
  Receipt Date: 20100412
  Transmission Date: 20101027
  Serious: Yes (Other)
  Sender: FDA-Public Use
  Company Number: None

PATIENT
  Sex: Female

DRUGS (1)
  1. ENALAPRIL MALEATE [Suspect]
     Indication: HYPERTENSION
     Dosage: 2.5 MG DAILY ORAL
     Route: 048
     Dates: start: 20100325, end: 20100407

REACTIONS (2)
  - ANGIOEDEMA [None]
  - SWELLING FACE [None]
